FAERS Safety Report 6354882-7 (Version None)
Quarter: 2009Q3

REPORT INFORMATION
  Report Type: 
  Country: None (occurrence: None)
  Receive Date: 20090914
  Receipt Date: 20090903
  Transmission Date: 20100115
  Serious: Yes (Other)
  Sender: FDA-Public Use
  Company Number: JP-MERCK-0909USA00916

PATIENT
  Age: 60 Year

DRUGS (2)
  1. DECADRON [Suspect]
     Route: 042
     Dates: start: 20090701
  2. DECADRON [Suspect]
     Route: 048

REACTIONS (1)
  - DEMENTIA [None]
